FAERS Safety Report 11536808 (Version 3)
Quarter: 2016Q1

REPORT INFORMATION
  Report Type: Spontaneous
  Country: US (occurrence: US)
  Receive Date: 20150922
  Receipt Date: 20160318
  Transmission Date: 20160525
  Serious: Yes (Hospitalization)
  Sender: FDA-Public Use
  Company Number: US-BAYER-2015-427661

PATIENT
  Age: 32 Year
  Sex: Female

DRUGS (8)
  1. KEFLEX [Concomitant]
     Active Substance: CEPHALEXIN
     Dosage: 500 MG, 4 TIMES DAILY
  2. MIRENA [Suspect]
     Active Substance: LEVONORGESTREL
     Indication: CONTRACEPTION
     Dosage: 20 MCG/24HR, CONT
     Route: 015
     Dates: start: 20120315, end: 20141024
  3. EPINEPHRINE. [Concomitant]
     Active Substance: EPINEPHRINE
  4. PERCOCET [Concomitant]
     Active Substance: ACETAMINOPHEN\OXYCODONE HYDROCHLORIDE
  5. NAPROXEN. [Concomitant]
     Active Substance: NAPROXEN
     Dosage: 500 MG, Q8HR, AS NEEDED
  6. IBUPROFEN. [Concomitant]
     Active Substance: IBUPROFEN
  7. PERI-COLACE [Concomitant]
     Active Substance: CASANTHRANOL\DOCUSATE SODIUM
  8. FLAGYL [Concomitant]
     Active Substance: METRONIDAZOLE\METRONIDAZOLE HYDROCHLORIDE
     Indication: BACTERIAL VAGINOSIS

REACTIONS (13)
  - Uterine perforation [None]
  - Device dislocation [None]
  - Injury [None]
  - Premature menopause [None]
  - Device difficult to use [None]
  - Uterine scar [None]
  - Infertility female [None]
  - Procedural pain [None]
  - Pain [None]
  - Pelvic inflammatory disease [None]
  - Ovarian abscess [None]
  - Menorrhagia [None]
  - Amenorrhoea [None]

NARRATIVE: CASE EVENT DATE: 201410
